FAERS Safety Report 6047558-7 (Version None)
Quarter: 2009Q1

REPORT INFORMATION
  Report Type: 
  Country: None (occurrence: None)
  Receive Date: 20090123
  Receipt Date: 20090116
  Transmission Date: 20090719
  Serious: Yes (Death)
  Sender: FDA-Public Use
  Company Number: US-RANBAXY-2009RR-20625

PATIENT
  Age: 34 Year
  Sex: Female

DRUGS (5)
  1. ACETAMINOPHEN [Suspect]
  2. DIPHENHYDRAMINE HCL [Suspect]
  3. IBUPROFEN [Suspect]
  4. ASPIRIN [Suspect]
  5. LORATADINE [Suspect]

REACTIONS (1)
  - DRUG ABUSE [None]
